FAERS Safety Report 10467511 (Version 1)
Quarter: 2014Q3

REPORT INFORMATION
  Report Type: Spontaneous
  Country: US (occurrence: US)
  Receive Date: 20140922
  Receipt Date: 20140922
  Transmission Date: 20150326
  Serious: No
  Sender: FDA-Public Use
  Company Number: US-009507513-1409USA002636

PATIENT
  Age: 21 Month
  Sex: Female
  Weight: 10.88 kg

DRUGS (1)
  1. CLARITIN [Suspect]
     Active Substance: LORATADINE
     Indication: PRODUCT USED FOR UNKNOWN INDICATION
     Dosage: 3.75 ML, ONCE
     Route: 048
     Dates: start: 20140831, end: 20140831

REACTIONS (2)
  - Drug administered to patient of inappropriate age [Unknown]
  - Accidental exposure to product [Unknown]
